FAERS Safety Report 11284842 (Version 2)
Quarter: 2015Q4

REPORT INFORMATION
  Report Type: Report from Study
  Country: US (occurrence: US)
  Receive Date: 20150720
  Receipt Date: 20151001
  Transmission Date: 20160304
  Serious: Yes (Other)
  Sender: FDA-Public Use
  Company Number: US-AEGERION PHARMACEUTICAL INC.-AEGR001382

PATIENT

DRUGS (2)
  1. JUXTAPID [Suspect]
     Active Substance: LOMITAPIDE MESYLATE
     Dosage: 5 MG, UNK
     Route: 048
     Dates: start: 201507
  2. JUXTAPID [Suspect]
     Active Substance: LOMITAPIDE MESYLATE
     Indication: TYPE IIA HYPERLIPIDAEMIA
     Dosage: 5 MG, UNK
     Route: 048
     Dates: start: 20150429, end: 201507

REACTIONS (12)
  - Weight decreased [Unknown]
  - Liver function test abnormal [Not Recovered/Not Resolved]
  - Feeling abnormal [Unknown]
  - Gastrointestinal disorder [Unknown]
  - Alanine aminotransferase increased [Unknown]
  - Therapy cessation [Recovered/Resolved]
  - Muscle spasms [Recovered/Resolved]
  - Drug dose omission [Recovered/Resolved]
  - Frequent bowel movements [Recovered/Resolved]
  - Gastroenteritis viral [Unknown]
  - Abdominal pain upper [Unknown]
  - Nausea [Recovered/Resolved]

NARRATIVE: CASE EVENT DATE: 201505
